FAERS Safety Report 6179951-6 (Version None)
Quarter: 2009Q2

REPORT INFORMATION
  Report Type: 
  Country: None (occurrence: None)
  Receive Date: 20090505
  Receipt Date: 20090424
  Transmission Date: 20091009
  Serious: Yes (Hospitalization, Other)
  Sender: FDA-Public Use
  Company Number: PHEH2009US03266

PATIENT
  Sex: Female
  Weight: 55.51 kg

DRUGS (9)
  1. SANDIMMUNE [Suspect]
     Indication: LIVER TRANSPLANT
     Dosage: 75MG QAM + 50MG QPM
     Route: 048
  2. MYFORTIC [Suspect]
     Indication: LIVER TRANSPLANT
     Dosage: 360 MG, BID
     Route: 048
  3. ATENOLOL [Concomitant]
     Dosage: 25 MG, QD
     Route: 048
  4. DAPSONE [Concomitant]
     Dosage: 1/2 TABLET, DAILY
     Route: 048
  5. PREDNISONE [Concomitant]
     Dosage: UNK, UNK
  6. IRON SUPPLEMENTS [Concomitant]
     Dosage: UNK, UNK
  7. CALCIUM [Concomitant]
     Dosage: UNK, UNK
  8. FOLIC ACID [Concomitant]
     Dosage: UNK, UNK
  9. MULTIVITAMINS, OTHER COMBINATIONS [Concomitant]
     Dosage: UNK, UNK

REACTIONS (25)
  - ABDOMINAL PAIN [None]
  - ABDOMINAL PAIN LOWER [None]
  - ANAEMIA [None]
  - ASTHENIA [None]
  - BILIARY DILATATION [None]
  - BREAST CANCER [None]
  - BREAST MASS [None]
  - BREAST OPERATION [None]
  - COAGULOPATHY [None]
  - COMPUTERISED TOMOGRAM ABNORMAL [None]
  - CONSTIPATION [None]
  - DIABETES MELLITUS [None]
  - DIARRHOEA [None]
  - DIVERTICULITIS [None]
  - GASTROENTERITIS VIRAL [None]
  - METABOLIC ACIDOSIS [None]
  - MUSCULAR WEAKNESS [None]
  - NAUSEA [None]
  - OEDEMA PERIPHERAL [None]
  - PANCREATIC CYST [None]
  - PNEUMONIA [None]
  - RENAL FAILURE CHRONIC [None]
  - URINARY RETENTION [None]
  - VOMITING [None]
  - WHITE BLOOD CELL COUNT INCREASED [None]
